FAERS Safety Report 8123095-0 (Version None)
Quarter: 2012Q1

REPORT INFORMATION
  Report Type: 
  Country: None (occurrence: None)
  Receive Date: 20120208
  Receipt Date: 20120202
  Transmission Date: 20120608
  Serious: No
  Sender: FDA-Public Use
  Company Number: US-PFIZER INC-2012029653

PATIENT
  Sex: Female
  Weight: 58.957 kg

DRUGS (2)
  1. VIAGRA [Suspect]
     Dosage: UNK
  2. VIAGRA [Suspect]
     Dosage: 25 MG, DAILY
     Dates: start: 20110101

REACTIONS (5)
  - CERVIX DISORDER [None]
  - VULVOVAGINAL DISCOMFORT [None]
  - VULVOVAGINAL PRURITUS [None]
  - EXPOSURE VIA SEMEN [None]
  - VULVOVAGINAL DRYNESS [None]
